FAERS Safety Report 23453901 (Version 7)
Quarter: 2025Q2

REPORT INFORMATION
  Report Type: Report from Study
  Country: GB (occurrence: GB)
  Receive Date: 20240129
  Receipt Date: 20250516
  Transmission Date: 20250716
  Serious: Yes (Hospitalization, Other)
  Sender: AMGEN
  Company Number: GB-Vifor (International) Inc.-VIT-2024-00468

PATIENT
  Age: 78 Year
  Sex: Male
  Weight: 79.6 kg

DRUGS (44)
  1. AVACOPAN [Suspect]
     Active Substance: AVACOPAN
     Indication: Anti-neutrophil cytoplasmic antibody positive vasculitis
     Dosage: 30 MG, BID
     Route: 048
     Dates: start: 20231020, end: 20240104
  2. PREDNISOLONE [Concomitant]
     Active Substance: PREDNISOLONE
     Indication: Anti-neutrophil cytoplasmic antibody positive vasculitis
     Dosage: DAILY (OD)
     Route: 048
     Dates: start: 2023, end: 20230901
  3. PREDNISOLONE [Concomitant]
     Active Substance: PREDNISOLONE
     Indication: Myasthenia gravis
     Dosage: DAILY (OD)
     Route: 048
     Dates: start: 20230902, end: 20230907
  4. PREDNISOLONE [Concomitant]
     Active Substance: PREDNISOLONE
     Dosage: DAILY (OD)
     Route: 048
     Dates: start: 20230911, end: 20230911
  5. PREDNISOLONE [Concomitant]
     Active Substance: PREDNISOLONE
     Dosage: DAILY (OD)
     Route: 048
     Dates: start: 20230912, end: 202309
  6. PREDNISOLONE [Concomitant]
     Active Substance: PREDNISOLONE
     Dosage: DAILY (OD)
     Route: 048
     Dates: start: 202309, end: 202309
  7. PREDNISOLONE [Concomitant]
     Active Substance: PREDNISOLONE
     Dosage: DAILY (OD)
     Route: 048
     Dates: start: 202309, end: 202309
  8. PREDNISOLONE [Concomitant]
     Active Substance: PREDNISOLONE
     Dosage: DAILY (OD)
     Route: 048
     Dates: start: 202309, end: 20230930
  9. PREDNISOLONE [Concomitant]
     Active Substance: PREDNISOLONE
     Dosage: DAILY (OD)
     Route: 048
     Dates: start: 20231001, end: 20231005
  10. PREDNISOLONE [Concomitant]
     Active Substance: PREDNISOLONE
     Dosage: DAILY (OD)
     Route: 048
     Dates: start: 20231006, end: 202310
  11. PREDNISOLONE [Concomitant]
     Active Substance: PREDNISOLONE
     Dosage: DAILY (OD)
     Route: 048
     Dates: start: 20231020, end: 20231031
  12. PREDNISOLONE [Concomitant]
     Active Substance: PREDNISOLONE
     Dosage: DAILY (OD)
     Route: 048
     Dates: start: 202310, end: 20231019
  13. PREDNISOLONE [Concomitant]
     Active Substance: PREDNISOLONE
     Dosage: DAILY (OD)
     Route: 048
     Dates: start: 20231101, end: 202311
  14. PREDNISOLONE [Concomitant]
     Active Substance: PREDNISOLONE
     Dosage: DAILY (OD)
     Route: 048
     Dates: start: 20240111, end: 20240117
  15. PREDNISOLONE [Concomitant]
     Active Substance: PREDNISOLONE
     Dosage: DAILY (OD)
     Route: 048
     Dates: start: 20240118, end: 20240124
  16. PREDNISOLONE [Concomitant]
     Active Substance: PREDNISOLONE
     Dosage: DAILY (OD)
     Route: 048
     Dates: start: 20240125, end: 20240131
  17. PREDNISOLONE [Concomitant]
     Active Substance: PREDNISOLONE
     Dosage: DAILY (OD)
     Route: 048
     Dates: start: 20240201, end: 20240208
  18. CLOPIDOGREL [Concomitant]
     Active Substance: CLOPIDOGREL BISULFATE
     Indication: Atrial fibrillation
     Dosage: 75,MG,QD
     Route: 048
     Dates: start: 20231013
  19. ACETAMINOPHEN [Concomitant]
     Active Substance: ACETAMINOPHEN
     Indication: Pain assessment
     Route: 048
     Dates: start: 20231011
  20. BECLOMETHASONE DIPROPIONATE [Concomitant]
     Active Substance: BECLOMETHASONE DIPROPIONATE
     Indication: Dyspnoea
     Dosage: 100 MICROGRAMS/DOSE INHALER
     Route: 055
     Dates: start: 20170825
  21. CALCIUM CARBONATE\CHOLECALCIFEROL [Concomitant]
     Active Substance: CALCIUM CARBONATE\CHOLECALCIFEROL
     Indication: Prophylaxis
     Dosage: 1.5 GRAM + 10 MICROGRAM PER CHEWABLE TABLET
     Route: 048
     Dates: start: 20201211
  22. COTRIMOXAZOLE [Concomitant]
     Active Substance: SULFAMETHOXAZOLE\TRIMETHOPRIM
     Indication: Prophylaxis
     Dosage: 80MG/400MG TABLETS
     Route: 048
     Dates: start: 20230908
  23. FOLIC ACID [Concomitant]
     Active Substance: FOLIC ACID
     Indication: Prophylaxis
     Dosage: 5,MG,QD
     Route: 048
     Dates: start: 2023, end: 20231219
  24. LANSOPRAZOLE [Concomitant]
     Active Substance: LANSOPRAZOLE
     Indication: Gastrointestinal disorder prophylaxis
     Dosage: 30,MG,BID
     Route: 048
     Dates: start: 20150522, end: 20231219
  25. PRAVASTATIN [Concomitant]
     Active Substance: PRAVASTATIN
     Indication: Prophylaxis
     Dosage: 20,MG,QD
     Route: 048
     Dates: start: 20140512, end: 20231219
  26. ALBUTEROL [Concomitant]
     Active Substance: ALBUTEROL
     Indication: Dyspnoea
     Route: 055
     Dates: start: 20161208, end: 20231219
  27. Xailin night [Concomitant]
     Indication: Eyelid ptosis
     Dosage: NIGHT EYE OINTMENT PRESERVATIVE-FREE
     Route: 047
     Dates: start: 2020
  28. POLYETHYLENE GLYCOLS [Concomitant]
     Active Substance: POLYETHYLENE GLYCOLS
     Indication: Constipation
     Route: 048
     Dates: start: 20201117, end: 20240108
  29. POLYETHYLENE GLYCOLS [Concomitant]
     Active Substance: POLYETHYLENE GLYCOLS
     Dosage: 2,DF,BID
     Route: 048
     Dates: start: 20240109, end: 20240128
  30. RITUXIMAB [Concomitant]
     Active Substance: RITUXIMAB
     Route: 042
     Dates: start: 20250321, end: 20250321
  31. RITUXIMAB [Concomitant]
     Active Substance: RITUXIMAB
     Route: 040
     Dates: start: 20230911, end: 20230911
  32. RITUXIMAB [Concomitant]
     Active Substance: RITUXIMAB
     Route: 040
     Dates: start: 20230926, end: 20230926
  33. RITUXIMAB [Concomitant]
     Active Substance: RITUXIMAB
     Dates: start: 20240319, end: 20240319
  34. RITUXIMAB [Concomitant]
     Active Substance: RITUXIMAB
     Route: 040
     Dates: start: 20240920, end: 20240920
  35. RITUXIMAB [Concomitant]
     Active Substance: RITUXIMAB
  36. METHYLPREDNISOLONE [Concomitant]
     Active Substance: METHYLPREDNISOLONE
     Route: 042
     Dates: start: 20250321, end: 20250321
  37. METHYLPREDNISOLONE [Concomitant]
     Active Substance: METHYLPREDNISOLONE
     Dosage: 0.5 G, OD
     Route: 040
     Dates: start: 20230907, end: 20230909
  38. METHYLPREDNISOLONE [Concomitant]
     Active Substance: METHYLPREDNISOLONE
     Route: 040
     Dates: start: 20230911, end: 20230911
  39. METHYLPREDNISOLONE [Concomitant]
     Active Substance: METHYLPREDNISOLONE
     Route: 040
     Dates: start: 20230926, end: 20230926
  40. METHYLPREDNISOLONE [Concomitant]
     Active Substance: METHYLPREDNISOLONE
     Route: 048
     Dates: start: 20240319, end: 20240319
  41. METHYLPREDNISOLONE [Concomitant]
     Active Substance: METHYLPREDNISOLONE
     Route: 040
     Dates: start: 20240920, end: 20240920
  42. MYCOPHENOLIC ACID [Concomitant]
     Active Substance: MYCOPHENOLIC ACID
     Indication: Myasthenia gravis
     Dosage: 1.25 G, BID
     Route: 048
     Dates: start: 202110, end: 20230831
  43. MYCOPHENOLIC ACID [Concomitant]
     Active Substance: MYCOPHENOLIC ACID
     Dosage: 1 UNK
     Route: 048
     Dates: start: 20230901, end: 20230904
  44. MYCOPHENOLIC ACID [Concomitant]
     Active Substance: MYCOPHENOLIC ACID
     Dates: start: 20230905, end: 20230907

REACTIONS (7)
  - Lower respiratory tract infection [Recovered/Resolved]
  - Constipation [Recovered/Resolved]
  - Pulmonary oedema [Recovered/Resolved]
  - Thoracic vertebral fracture [Recovered/Resolved]
  - Pruritus [Recovered/Resolved]
  - Anaemia [Recovered/Resolved]
  - Rash pruritic [Recovering/Resolving]

NARRATIVE: CASE EVENT DATE: 20231201
